FAERS Safety Report 24885799 (Version 1)
Quarter: 2025Q1

REPORT INFORMATION
  Report Type: Spontaneous
  Country: US (occurrence: US)
  Receive Date: 20250125
  Receipt Date: 20250125
  Transmission Date: 20250409
  Serious: Yes (Death, Other)
  Sender: AMGEN
  Company Number: US-AMGEN-USASP2025010613

PATIENT

DRUGS (4)
  1. FILGRASTIM [Suspect]
     Active Substance: FILGRASTIM
     Indication: Haematopoietic stem cell mobilisation
     Route: 065
  2. CYCLOPHOSPHAMIDE [Concomitant]
     Active Substance: CYCLOPHOSPHAMIDE
     Indication: Prophylaxis
     Dosage: UNK UNK, QD (50 MG/KG/D) (POST TRANSPLANT) (DAY 3 AND 4)
     Route: 065
  3. TACROLIMUS [Concomitant]
     Active Substance: TACROLIMUS
     Indication: Prophylaxis
     Route: 065
  4. MYCOPHENOLATE MOFETIL [Concomitant]
     Active Substance: MYCOPHENOLATE MOFETIL
     Indication: Prophylaxis
     Route: 065

REACTIONS (28)
  - Death [Fatal]
  - Respiratory failure [Fatal]
  - Chronic graft versus host disease in skin [Fatal]
  - Chronic graft versus host disease in lung [Fatal]
  - Cystitis haemorrhagic [Fatal]
  - Organising pneumonia [Fatal]
  - Pulmonary fibrosis [Fatal]
  - Acute graft versus host disease [Unknown]
  - Mucosal inflammation [Unknown]
  - Epstein-Barr viraemia [Unknown]
  - Cytomegalovirus viraemia [Recovered/Resolved]
  - Chronic graft versus host disease [Unknown]
  - Venoocclusive liver disease [Unknown]
  - Encephalitis [Recovered/Resolved]
  - Eczema [Unknown]
  - Asthma [Unknown]
  - Chronic respiratory disease [Unknown]
  - Food allergy [Unknown]
  - Molluscum contagiosum [Unknown]
  - Herpes simplex [Unknown]
  - Varicella zoster virus infection [Unknown]
  - Papilloma viral infection [Unknown]
  - Dysplasia [Unknown]
  - Cryptosporidiosis infection [Unknown]
  - Infection [Unknown]
  - Atopy [Recovering/Resolving]
  - Off label use [Unknown]
  - Alopecia [Recovered/Resolved]
